FAERS Safety Report 26174957 (Version 1)
Quarter: 2025Q4

REPORT INFORMATION
  Report Type: Report from Study
  Country: BR (occurrence: BR)
  Receive Date: 20251218
  Receipt Date: 20251218
  Transmission Date: 20260118
  Serious: Yes (Other)
  Sender: ELI LILLY AND COMPANY
  Company Number: BR-Merck Healthcare KGaA-2025063594

PATIENT
  Age: 62 Year
  Sex: Female

DRUGS (2)
  1. CETUXIMAB [Suspect]
     Active Substance: CETUXIMAB
     Indication: Colorectal cancer metastatic
     Dosage: 880 ML, EVERY 14 DAYS
     Route: 042
     Dates: start: 20240518
  2. CETUXIMAB [Suspect]
     Active Substance: CETUXIMAB
     Dosage: 880 ML, EVERY 21 DAYS
     Route: 042
     Dates: start: 20240518

REACTIONS (3)
  - Vein disorder [Unknown]
  - Vein rupture [Unknown]
  - Off label use [Unknown]
